FAERS Safety Report 6013631-2 (Version None)
Quarter: 2008Q4

REPORT INFORMATION
  Report Type: 
  Country: None (occurrence: None)
  Receive Date: 20081219
  Receipt Date: 20081209
  Transmission Date: 20090506
  Serious: Yes (Hospitalization)
  Sender: FDA-Public Use
  Company Number: JP-ROCHE-593856

PATIENT
  Sex: Male
  Weight: 47 kg

DRUGS (12)
  1. RIVOTRIL [Suspect]
     Indication: EPILEPSY
     Dosage: DOSEFORM: FINE GRANULE
     Route: 048
     Dates: end: 20081015
  2. TEGRETOL [Suspect]
     Indication: DRUG USE FOR UNKNOWN INDICATION
     Dosage: FORM REPORTED AS FINE GRANULE
     Route: 048
     Dates: start: 20080404, end: 20081015
  3. PENTOBARBITAL SODIUM [Suspect]
     Indication: DRUG USE FOR UNKNOWN INDICATION
     Route: 048
     Dates: start: 20080310, end: 20081015
  4. CHLORAL HYDRATE [Suspect]
     Indication: EPILEPSY
     Dosage: TAKEN AS NEEDED: 25 MG
     Route: 054
     Dates: start: 20080321
  5. CHLORAL HYDRATE [Suspect]
     Dosage: TAKEN AS NEEDED: 30 MG
     Route: 054
     Dates: start: 20080829
  6. HYSERENIN [Concomitant]
     Route: 048
  7. CIMETIDINE [Concomitant]
     Dosage: DRUG REPORTED AS: CYLOCK
     Route: 048
  8. DAI-KENCHU-TO [Concomitant]
     Route: 048
  9. CLOBAZAM [Concomitant]
     Dosage: DOSEFORM: FINE GRANULES
     Route: 048
  10. GASMOTIN [Concomitant]
     Route: 048
  11. MUCOSAL [Concomitant]
     Route: 048
  12. ANTIHISTAMINICS [Concomitant]
     Dates: start: 20080929

REACTIONS (1)
  - DRUG RASH WITH EOSINOPHILIA AND SYSTEMIC SYMPTOMS [None]
